FAERS Safety Report 8677563 (Version 23)
Quarter: 2015Q4

REPORT INFORMATION
  Report Type: Spontaneous
  Country: US (occurrence: US)
  Receive Date: 20120723
  Receipt Date: 20151002
  Transmission Date: 20160305
  Serious: Yes (Life-Threatening, Hospitalization, Congenital Anomaly, Other)
  Sender: FDA-Public Use
  Company Number: US-PFIZER INC-2012173631

PATIENT
  Sex: Female
  Weight: 3 kg

DRUGS (17)
  1. ZOLOFT [Suspect]
     Active Substance: SERTRALINE HYDROCHLORIDE
     Dosage: 50 MG, 1X/DAY
     Route: 064
     Dates: end: 20100527
  2. TOBRAMYCIN. [Concomitant]
     Active Substance: TOBRAMYCIN
     Indication: OPHTHALMIC HERPES SIMPLEX
     Dosage: UNK UNK, 4X/DAY (0.3% ONE TO TWO DROPS FOUR TIMES DAILY)
     Route: 064
     Dates: start: 20100407
  3. SEASONAL INFLUENZA VACCINE [Concomitant]
     Dosage: 1 DF, UNK
     Route: 064
     Dates: start: 20100913
  4. ZOLOFT [Suspect]
     Active Substance: SERTRALINE HYDROCHLORIDE
     Dosage: 50 MG, 1X/DAY
     Route: 064
     Dates: start: 20101011
  5. ZOLOFT [Suspect]
     Active Substance: SERTRALINE HYDROCHLORIDE
     Dosage: UNK
     Route: 064
     Dates: start: 20100410
  6. XANAX [Concomitant]
     Active Substance: ALPRAZOLAM
     Indication: ANXIETY
     Dosage: 0.5 MG, 1X/DAY
     Route: 064
     Dates: start: 20110109, end: 20110110
  7. DOXYCYCLINE HYCLATE. [Concomitant]
     Active Substance: DOXYCYCLINE HYCLATE
     Dosage: 100 MG, 1X/DAY
     Route: 064
     Dates: start: 20091105
  8. ZOLOFT [Suspect]
     Active Substance: SERTRALINE HYDROCHLORIDE
     Dosage: UNK
     Route: 064
     Dates: start: 20100329
  9. PRENATAL VITAMINS [Concomitant]
     Active Substance: VITAMINS
     Dosage: 1 DF, DAILY
     Route: 064
     Dates: start: 20101011
  10. CLARITIN [Concomitant]
     Active Substance: LORATADINE
     Dosage: UNK
     Route: 064
  11. ZOFRAN [Concomitant]
     Active Substance: ONDANSETRON HYDROCHLORIDE
     Indication: NAUSEA
     Dosage: 4 MG, 1X/DAY(AT BEDTIME)
     Route: 064
  12. ONDANSETRON ODT [Concomitant]
     Active Substance: ONDANSETRON
     Indication: VOMITING
  13. ZOLOFT [Suspect]
     Active Substance: SERTRALINE HYDROCHLORIDE
     Indication: DEPRESSION
     Dosage: 50 MG, UNK
     Route: 064
     Dates: start: 2009
  14. FLINTSTONES VITAMINS [Concomitant]
     Dosage: UNK, 2X/DAY
     Route: 064
  15. SERTRALINE [Concomitant]
     Active Substance: SERTRALINE HYDROCHLORIDE
     Dosage: 50 MG, 1X/DAY
     Route: 064
     Dates: start: 20100412
  16. ONDANSETRON ODT [Concomitant]
     Active Substance: ONDANSETRON
     Indication: NAUSEA
     Dosage: 4 MG, 4X/DAY
     Route: 064
     Dates: start: 20100523
  17. ONDANSETRON [Concomitant]
     Active Substance: ONDANSETRON
     Dosage: 4 MG, 3X/DAY
     Route: 064
     Dates: start: 20100624

REACTIONS (7)
  - Atrial septal defect [Recovered/Resolved]
  - Ventricular septal defect [Unknown]
  - Coarctation of the aorta [Recovered/Resolved]
  - Atrial septal defect [Recovered/Resolved]
  - Bicuspid aortic valve [Unknown]
  - Maternal exposure timing unspecified [Unknown]
  - Heart disease congenital [Not Recovered/Not Resolved]

NARRATIVE: CASE EVENT DATE: 20110110
